FAERS Safety Report 6723616-6 (Version None)
Quarter: 2010Q2

REPORT INFORMATION
  Report Type: 
  Country: None (occurrence: None)
  Receive Date: 20100513
  Receipt Date: 20100430
  Transmission Date: 20101027
  Serious: Yes (Hospitalization)
  Sender: FDA-Public Use
  Company Number: JP-WATSON-2010-06077

PATIENT
  Age: 74 Year
  Sex: Female
  Weight: 38 kg

DRUGS (6)
  1. FENTANYL CITRATE [Suspect]
     Indication: ANAESTHESIA
     Dosage: 200 U/G, TOTAL OF 900 U/G
     Route: 042
  2. VECURONIUM BROMIDE (WATSON LABORATORIES) [Suspect]
     Indication: ANAESTHESIA
     Dosage: 6 MG, UNK
     Route: 042
  3. DEXMEDETOMIDINE HYDROCHLORIDE [Suspect]
     Indication: ANAESTHESIA
     Dosage: 0.26 U/G PER KG, PER HOUR
     Route: 042
  4. SEVOFLURANE [Suspect]
     Indication: ANAESTHESIA
     Dosage: 1-1.5%
     Route: 042
  5. REMIFENTANIL [Suspect]
     Indication: ANAESTHESIA
     Dosage: 0.1-0.15 U/G PER KG PER MIN
     Route: 042
  6. PROPOFOL [Suspect]
     Indication: ANAESTHESIA
     Dosage: 4MG/KG PER HOUR
     Route: 042

REACTIONS (4)
  - APNOEA [None]
  - POTENTIATING DRUG INTERACTION [None]
  - RESPIRATORY DEPRESSION [None]
  - UPPER AIRWAY OBSTRUCTION [None]
